FAERS Safety Report 25037793 (Version 1)
Quarter: 2025Q1

REPORT INFORMATION
  Report Type: Spontaneous
  Country: FR (occurrence: FR)
  Receive Date: 20250304
  Receipt Date: 20250304
  Transmission Date: 20250408
  Serious: Yes (Disabling, Other)
  Sender: BRISTOL-MYERS SQUIBB COMPANY
  Company Number: FR-BRISTOL-MYERS SQUIBB COMPANY-2025-030570

PATIENT
  Age: 73 Year
  Sex: Female

DRUGS (1)
  1. ELIQUIS [Suspect]
     Active Substance: APIXABAN
     Indication: Atrial fibrillation
     Dates: start: 202405

REACTIONS (8)
  - Contusion [Unknown]
  - Gait inability [Unknown]
  - Cerebrovascular accident [Unknown]
  - Pain [Unknown]
  - Emotional distress [Unknown]
  - Burning sensation [Unknown]
  - Arthropathy [Unknown]
  - Confusional state [Unknown]
